FAERS Safety Report 4612814-3 (Version None)
Quarter: 2005Q1

REPORT INFORMATION
  Report Type: 
  Country: None (occurrence: None)
  Receive Date: 20050318
  Receipt Date: 20050309
  Transmission Date: 20050727
  Serious: Yes (Life-Threatening, Hospitalization)
  Sender: FDA-Public Use
  Company Number: PHBS2005IT03484

PATIENT
  Age: 11 Year
  Sex: Female

DRUGS (3)
  1. TOLEP [Suspect]
     Indication: EPILEPSY
     Dosage: UNK, UNK
     Route: 065
     Dates: start: 20050201
  2. TOLEP [Suspect]
     Dosage: 450 MG/D
     Route: 065
     Dates: start: 20050307
  3. GARDENALE [Concomitant]
     Dosage: 125 MG/D
     Route: 065

REACTIONS (4)
  - APLASIA [None]
  - AUTOIMMUNE THROMBOCYTOPENIA [None]
  - HAEMORRHAGE [None]
  - HEPATIC FAILURE [None]
